FAERS Safety Report 5808885-9 (Version None)
Quarter: 2008Q3

REPORT INFORMATION
  Report Type: 
  Country: None (occurrence: None)
  Receive Date: 20080714
  Receipt Date: 20080709
  Transmission Date: 20090109
  Serious: Yes (Disabling, Other)
  Sender: FDA-Public Use
  Company Number: CH-ASTRAZENECA-2008PK01481

PATIENT
  Age: 24418 Day
  Sex: Female
  Weight: 59 kg

DRUGS (5)
  1. SCANDICAIN [Suspect]
     Indication: VITRECTOMY
     Route: 056
     Dates: start: 20070328, end: 20070328
  2. TIATRAL [Concomitant]
     Indication: CARDIAC VALVE PROSTHESIS USER
  3. MARCUMAR [Concomitant]
     Indication: CARDIAC VALVE PROSTHESIS USER
  4. SIMCORA 20 [Concomitant]
     Indication: BLOOD PRESSURE
  5. FELODIL [Concomitant]
     Indication: HYPERTENSION

REACTIONS (1)
  - RETINAL ARTERY OCCLUSION [None]
